FAERS Safety Report 22337326 (Version 1)
Quarter: 2023Q2

REPORT INFORMATION
  Report Type: Spontaneous
  Country: US (occurrence: None)
  Receive Date: 20230518
  Receipt Date: 20230518
  Transmission Date: 20230721
  Serious: No
  Sender: FDA-Public Use
  Company Number: US-ROCHE-3276899

PATIENT
  Age: 35 Year
  Sex: Female
  Weight: 98.972 kg

DRUGS (7)
  1. ACTEMRA [Suspect]
     Active Substance: TOCILIZUMAB
     Indication: Rheumatoid arthritis
     Dosage: IT WAS 0.9 ML, STRENGTH: 162MG/0.9ML
     Route: 058
     Dates: start: 20221230
  2. ACTEMRA [Suspect]
     Active Substance: TOCILIZUMAB
  3. PREDNISONE [Concomitant]
     Active Substance: PREDNISONE
     Indication: Pain
     Dosage: RECEIVED 2 OR 3 YEARS ON AND OFF
     Route: 048
  4. PREDNISONE [Concomitant]
     Active Substance: PREDNISONE
     Indication: Rheumatoid arthritis
  5. IRON [Concomitant]
     Active Substance: IRON
     Dosage: RECEIVED 9 MONTHS OR SO AND IT WAS 100-250 MG
     Route: 048
  6. VITAMIN C [Concomitant]
     Active Substance: ASCORBIC ACID
     Dosage: RECEIVED 9 MONTHS OR SO AND IT WAS 100-250 MG
     Route: 048
  7. PLAQUENIL [Concomitant]
     Active Substance: HYDROXYCHLOROQUINE SULFATE
     Indication: Rheumatoid arthritis
     Dosage: RECEIVED IT AT LEAST 4 YEARS OR SO
     Route: 048

REACTIONS (9)
  - Pain [Not Recovered/Not Resolved]
  - Joint swelling [Not Recovered/Not Resolved]
  - Arthralgia [Not Recovered/Not Resolved]
  - Malaise [Not Recovered/Not Resolved]
  - Syringe issue [Unknown]
  - Device issue [Unknown]
  - Accidental exposure to product [Unknown]
  - Underdose [Unknown]
  - Drug delivery system malfunction [Unknown]

NARRATIVE: CASE EVENT DATE: 20230101
